FAERS Safety Report 9613413 (Version 1)
Quarter: 2013Q4

REPORT INFORMATION
  Report Type: Spontaneous
  Country: NL (occurrence: None)
  Receive Date: 20131008
  Receipt Date: 20131008
  Transmission Date: 20140711
  Serious: Yes (Hospitalization)
  Sender: FDA-Public Use
  Company Number: ENT 2013-0167

PATIENT
  Sex: Male
  Weight: 85 kg

DRUGS (5)
  1. COMTAN [Suspect]
     Indication: PARKINSON^S DISEASE
     Dosage: 5 DF DAILY; STRENGTH: 200 MG
     Dates: start: 201308
  2. AVODART [Concomitant]
  3. LEVODOPA-CARBIDOPA [Concomitant]
  4. OXAZEPAM [Concomitant]
  5. CARBASALATE CALCIUM [Concomitant]

REACTIONS (3)
  - Diarrhoea [None]
  - Hypokalaemia [None]
  - Potentiating drug interaction [None]
